FAERS Safety Report 18962920 (Version 1)
Quarter: 2021Q1

REPORT INFORMATION
  Report Type: Spontaneous
  Country: US (occurrence: US)
  Receive Date: 20210303
  Receipt Date: 20210303
  Transmission Date: 20210420
  Serious: Yes (Hospitalization)
  Sender: FDA-Public Use
  Company Number: US-GW PHARMA-202102USGW00745

PATIENT

DRUGS (1)
  1. EPIDIOLEX [Suspect]
     Active Substance: CANNABIDIOL
     Indication: PRODUCT USED FOR UNKNOWN INDICATION
     Dosage: 24.99 MG/KG/DAY, 170 MILLIGRAM, BID
     Route: 048
     Dates: start: 20190520

REACTIONS (2)
  - Pneumonia [Unknown]
  - Prescribed overdose [Unknown]
